FAERS Safety Report 17271359 (Version 3)
Quarter: 2021Q1

REPORT INFORMATION
  Report Type: Spontaneous
  Country: US (occurrence: US)
  Receive Date: 20200115
  Receipt Date: 20210120
  Transmission Date: 20210419
  Serious: No
  Sender: FDA-Public Use
  Company Number: US-ELI_LILLY_AND_COMPANY-US202001005968

PATIENT
  Age: 72 Year
  Sex: Female

DRUGS (3)
  1. FORTEO [Suspect]
     Active Substance: TERIPARATIDE
     Dosage: UNK UNK, UNKNOWN
     Route: 058
     Dates: start: 20200105
  2. FORTEO [Suspect]
     Active Substance: TERIPARATIDE
     Dosage: UNK UNK, UNKNOWN
     Route: 058
  3. FORTEO [Suspect]
     Active Substance: TERIPARATIDE
     Indication: OSTEOPOROSIS
     Dosage: UNK UNK, UNKNOWN
     Route: 058
     Dates: start: 20190405, end: 20191016

REACTIONS (14)
  - Rash [Recovered/Resolved]
  - Limb injury [Unknown]
  - Hyperhidrosis [Unknown]
  - Stomatitis [Unknown]
  - Eye irritation [Unknown]
  - Nausea [Unknown]
  - Cough [Unknown]
  - Pain in extremity [Unknown]
  - Decreased appetite [Unknown]
  - Constipation [Unknown]
  - Muscle spasms [Unknown]
  - Malaise [Unknown]
  - Feeling abnormal [Unknown]
  - Gait disturbance [Unknown]

NARRATIVE: CASE EVENT DATE: 20200112
